FAERS Safety Report 16932525 (Version 1)
Quarter: 2019Q4

REPORT INFORMATION
  Report Type: Report from Study
  Country: None (occurrence: US)
  Receive Date: 20191017
  Receipt Date: 20191017
  Transmission Date: 20200122
  Serious: Yes (Other)
  Sender: FDA-Public Use
  Company Number: US-ABBVIE-19K-163-2962714-00

PATIENT
  Age: 79 Year
  Sex: Female

DRUGS (1)
  1. SYNTHROID [Suspect]
     Active Substance: LEVOTHYROXINE SODIUM
     Indication: PRODUCT USED FOR UNKNOWN INDICATION
     Route: 048

REACTIONS (9)
  - Ovarian cyst [Unknown]
  - Breast operation [Unknown]
  - Thyroid cancer [Unknown]
  - Thyroidectomy [Unknown]
  - Appendix disorder [Unknown]
  - Colectomy [Unknown]
  - Cholecystectomy [Unknown]
  - Skin lesion [Unknown]
  - Atrial appendage closure [Unknown]

NARRATIVE: CASE EVENT DATE: 20170926
